FAERS Safety Report 5673561-2 (Version None)
Quarter: 2008Q1

REPORT INFORMATION
  Report Type: 
  Country: None (occurrence: None)
  Receive Date: 20080319
  Receipt Date: 20080225
  Transmission Date: 20080703
  Serious: No
  Sender: FDA-Public Use
  Company Number: US-BOEHRINGER INGELHEIM GMBH, GERMANY-2008-BP-01548BP

PATIENT
  Sex: Male

DRUGS (4)
  1. CATAPRES-TTS-1 [Suspect]
     Indication: HYPERTENSION
     Route: 061
     Dates: start: 20070531, end: 20071230
  2. CATAPRES-TTS-1 [Suspect]
     Route: 061
     Dates: start: 20071231
  3. LOTREL [Concomitant]
     Indication: HYPERTENSION
     Dates: start: 19920101
  4. TRIAMTERENE [Concomitant]

REACTIONS (4)
  - APPLICATION SITE ERYTHEMA [None]
  - APPLICATION SITE PRURITUS [None]
  - APPLICATION SITE REACTION [None]
  - DERMATITIS CONTACT [None]
